FAERS Safety Report 5190935-7 (Version None)
Quarter: 2006Q4

REPORT INFORMATION
  Report Type: 
  Country: None (occurrence: None)
  Receive Date: 20061222
  Receipt Date: 20061218
  Transmission Date: 20070319
  Serious: Yes (Hospitalization)
  Sender: FDA-Public Use
  Company Number: FR-BOEHRINGER INGELHEIM PHARMACEUTICALS, INC.-2006-FF-01409FF

PATIENT
  Sex: Female
  Weight: 57 kg

DRUGS (10)
  1. VIRAMUNE [Suspect]
     Indication: HIV INFECTION
     Route: 048
     Dates: start: 20060818, end: 20060901
  2. VIRAMUNE [Suspect]
     Route: 048
     Dates: start: 20060902, end: 20061022
  3. VIRAMUNE [Suspect]
     Route: 048
     Dates: start: 20060101, end: 20061108
  4. BACTRIM [Concomitant]
     Route: 048
     Dates: end: 20061113
  5. TRUVADA [Concomitant]
     Route: 048
     Dates: start: 20060727, end: 20061113
  6. SPECIAFOLDINE [Concomitant]
  7. DIFFU K [Concomitant]
  8. TARDYFERON [Concomitant]
  9. ARANESP [Concomitant]
  10. INIPOMP [Concomitant]

REACTIONS (8)
  - DRUG INTOLERANCE [None]
  - HYPERPLASIA [None]
  - LYMPHADENITIS [None]
  - PRURITUS [None]
  - PYREXIA [None]
  - RASH [None]
  - RASH MACULO-PAPULAR [None]
  - SCRATCH [None]
